FAERS Safety Report 12811285 (Version 1)
Quarter: 2016Q4

REPORT INFORMATION
  Report Type: Spontaneous
  Country: US (occurrence: US)
  Receive Date: 20161005
  Receipt Date: 20161005
  Transmission Date: 20170207
  Serious: No
  Sender: FDA-Public Use
  Company Number: US-BEH-2015051866

PATIENT
  Sex: Male

DRUGS (1)
  1. IVIG [Suspect]
     Active Substance: HUMAN IMMUNOGLOBULIN G
     Indication: PRODUCT USED FOR UNKNOWN INDICATION
     Dosage: IVIG
     Route: 042

REACTIONS (4)
  - Myalgia [Unknown]
  - Malaise [Unknown]
  - Headache [Unknown]
  - Unevaluable event [Unknown]
